FAERS Safety Report 5774915-6 (Version None)
Quarter: 2008Q2

REPORT INFORMATION
  Report Type: 
  Country: None (occurrence: None)
  Receive Date: 20080616
  Receipt Date: 20080616
  Transmission Date: 20081010
  Serious: No
  Sender: FDA-Public Use
  Company Number: None

PATIENT
  Sex: Male
  Weight: 95 kg

DRUGS (6)
  1. TEMOZOLOMIDE [Suspect]
     Dosage: 6720 MG
  2. COUMADIN [Concomitant]
  3. DECADRON [Concomitant]
  4. DILANTIN [Concomitant]
  5. FRISIUM [Concomitant]
  6. WELLBUTRIN [Concomitant]

REACTIONS (9)
  - CHEST PAIN [None]
  - CHILLS [None]
  - COUGH [None]
  - LUNG DISORDER [None]
  - NAUSEA [None]
  - PLEURAL EFFUSION [None]
  - PNEUMONIA [None]
  - PULMONARY EMBOLISM [None]
  - VOMITING [None]
